FAERS Safety Report 10136462 (Version 2)
Quarter: 2015Q1

REPORT INFORMATION
  Report Type: Spontaneous
  Country: US (occurrence: None)
  Receive Date: 20140425
  Receipt Date: 20150213
  Transmission Date: 20150720
  Serious: Yes (Hospitalization, Other)
  Sender: FDA-Public Use
  Company Number: UTC-047387

PATIENT
  Age: 67 Year
  Sex: Male

DRUGS (3)
  1. REMODULIN [Suspect]
     Active Substance: TREPROSTINIL
     Indication: COR PULMONALE CHRONIC
     Dosage: 18 UG/KG (0.0125 UG/KG,L IN 1 MIN),INTRAVENOUS DRIP?
     Route: 041
     Dates: start: 20131019
  2. ADCIRCA [Concomitant]
     Active Substance: TADALAFIL
  3. WARFARIN (WARFARIN) [Concomitant]
     Active Substance: WARFARIN

REACTIONS (3)
  - Right ventricular failure [None]
  - Fluid retention [None]
  - Hypotension [None]
